FAERS Safety Report 9858260 (Version 5)
Quarter: 2014Q1

REPORT INFORMATION
  Report Type: Spontaneous
  Country: US (occurrence: US)
  Receive Date: 20140131
  Receipt Date: 20140217
  Transmission Date: 20141002
  Serious: Yes (Other)
  Sender: FDA-Public Use
  Company Number: US-JNJFOC-20140116003

PATIENT
  Sex: 0

DRUGS (1)
  1. REMICADE [Suspect]
     Indication: PRODUCT USED FOR UNKNOWN INDICATION
     Dosage: ON INFLIXIMAB FOR 1 YEAR
     Route: 042

REACTIONS (1)
  - Basal cell carcinoma [Not Recovered/Not Resolved]
